FAERS Safety Report 14018249 (Version 1)
Quarter: 2017Q3

REPORT INFORMATION
  Report Type: Spontaneous
  Country: US (occurrence: US)
  Receive Date: 20170928
  Receipt Date: 20170928
  Transmission Date: 20171128
  Serious: No
  Sender: FDA-Public Use
  Company Number: US-SUN PHARMACEUTICAL INDUSTRIES LTD-2017US-132124

PATIENT
  Sex: Female

DRUGS (1)
  1. LORATADINE. [Suspect]
     Active Substance: LORATADINE
     Indication: RHINORRHOEA
     Dosage: 2 TABLETS IN 24 HOURS
     Route: 065
     Dates: start: 201701

REACTIONS (2)
  - Expired product administered [Unknown]
  - Accidental overdose [Unknown]

NARRATIVE: CASE EVENT DATE: 201701
